FAERS Safety Report 8990992 (Version 1)
Quarter: 2012Q4

REPORT INFORMATION
  Report Type: Spontaneous
  Country: TR (occurrence: None)
  Receive Date: 20121220
  Receipt Date: 20121220
  Transmission Date: 20130627
  Serious: Yes (Hospitalization, Other)
  Sender: FDA-Public Use
  Company Number: INT_00165_2012

PATIENT
  Age: 15 Year
  Sex: Female
  Weight: 30 kg

DRUGS (2)
  1. CEFTAZIDIME [Suspect]
     Indication: PERITONITIS
     Dosage: , peritoneal and intravenous
(not otherwise specified)
     Route: 042
  2. VANCOMYCIN [Suspect]
     Indication: PERITONITIS
     Dosage: , peritoneal and intravenous
(not otherwise specified)

REACTIONS (7)
  - Status epilepticus [None]
  - Body temperature decreased [None]
  - Blood urea increased [None]
  - Blood creatinine increased [None]
  - Toxicity to various agents [None]
  - Blood pressure decreased [None]
  - Coma scale abnormal [None]
